FAERS Safety Report 24394365 (Version 3)
Quarter: 2024Q4

REPORT INFORMATION
  Report Type: Spontaneous
  Country: EG (occurrence: EG)
  Receive Date: 20241004
  Receipt Date: 20241124
  Transmission Date: 20250115
  Serious: Yes (Death, Hospitalization)
  Sender: NOVO NORDISK
  Company Number: EG-NOVOPROD-1289308

PATIENT
  Age: 152 Day
  Sex: Male

DRUGS (6)
  1. INSULIN HUMAN [Suspect]
     Active Substance: INSULIN HUMAN
     Dosage: UNK
     Route: 064
     Dates: start: 2019
  2. INSULIN HUMAN [Suspect]
     Active Substance: INSULIN HUMAN
     Dosage: 65 IU, QD(35 IU/MORN. AND 30 IU/NIGHT )
     Route: 064
     Dates: start: 20240727
  3. INSULIN HUMAN [Suspect]
     Active Substance: INSULIN HUMAN
     Indication: Diabetes mellitus
     Dosage: ACCORDING TO BGL (THE USUAL DOSES ARE 35 U/MORNING AND 40 U/NIGHT)
     Route: 064
     Dates: start: 2014
  4. INSULIN HUMAN [Suspect]
     Active Substance: INSULIN HUMAN
     Dosage: 75 IU, QD(40 IU/MORN. AND 35 IU/NIGHT)
     Route: 064
  5. ASPIRIN [Concomitant]
     Active Substance: ASPIRIN
     Indication: Anticoagulant therapy
     Dosage: 2 TABS/MORNING PER DAY
     Route: 064
  6. ATORVASTATIN CALCIUM [Concomitant]
     Active Substance: ATORVASTATIN CALCIUM
     Indication: Hypercholesterolaemia
     Dosage: 2 TABS/DAY
     Route: 064

REACTIONS (5)
  - Cardiac dysfunction [Fatal]
  - Single functional kidney [Fatal]
  - Ligament sprain [Fatal]
  - Shock [Fatal]
  - Foetal exposure during pregnancy [Recovered/Resolved]
